FAERS Safety Report 7027458-6 (Version None)
Quarter: 2010Q4

REPORT INFORMATION
  Report Type: 
  Country: None (occurrence: None)
  Receive Date: 20101001
  Receipt Date: 20101001
  Transmission Date: 20110411
  Serious: Yes (Hospitalization)
  Sender: FDA-Public Use
  Company Number: None

PATIENT
  Age: 58 Year
  Sex: Male
  Weight: 84.8226 kg

DRUGS (1)
  1. BENDAMUSTINE CEPHALON [Suspect]
     Indication: SMALL CELL LUNG CANCER STAGE UNSPECIFIED
     Dosage: 250 MGM D1 AND D2 IV
     Route: 042
     Dates: start: 20100923, end: 20100924

REACTIONS (5)
  - DYSPNOEA [None]
  - FIBROSIS [None]
  - OXYGEN SATURATION DECREASED [None]
  - TACHYCARDIA [None]
  - TACHYPNOEA [None]
